FAERS Safety Report 7635161-4 (Version None)
Quarter: 2011Q3

REPORT INFORMATION
  Report Type: 
  Country: None (occurrence: None)
  Receive Date: 20110726
  Receipt Date: 20110715
  Transmission Date: 20111222
  Serious: Yes (Other)
  Sender: FDA-Public Use
  Company Number: US-BAYER-201033339NA

PATIENT
  Age: 40 Year
  Sex: Female
  Weight: 81.633 kg

DRUGS (3)
  1. IBUPROFEN [Concomitant]
  2. ADVAIR DISKUS 100/50 [Concomitant]
     Indication: ASTHMA
     Dosage: UNK UNK, QD
     Dates: start: 20010101, end: 20090101
  3. YAZ [Suspect]
     Indication: PREMENSTRUAL SYNDROME
     Dosage: UNK
     Route: 048
     Dates: start: 20060501, end: 20060701

REACTIONS (2)
  - THROMBOSIS [None]
  - PULMONARY EMBOLISM [None]
